FAERS Safety Report 21880548 (Version 1)
Quarter: 2023Q1

REPORT INFORMATION
  Report Type: Report from Study
  Country: FR (occurrence: FR)
  Receive Date: 20230118
  Receipt Date: 20230118
  Transmission Date: 20230418
  Serious: Yes (Other)
  Sender: FDA-Public Use
  Company Number: FR-JNJFOC-20221157700

PATIENT
  Age: 57 Year
  Sex: Male

DRUGS (4)
  1. DEXAMETHASONE [Suspect]
     Active Substance: DEXAMETHASONE
     Indication: Plasma cell myeloma
     Dosage: 40 MG/DOSE1DOSE(S)/WEEK4WEEK(S)/CYCLE
     Route: 065
     Dates: end: 20210607
  2. LENALIDOMIDE [Suspect]
     Active Substance: LENALIDOMIDE
     Indication: Plasma cell myeloma
     Dosage: UNK
     Route: 065
     Dates: end: 20210607
  3. VELCADE [Suspect]
     Active Substance: BORTEZOMIB
     Indication: Plasma cell myeloma
     Dosage: 0.5WK,1.3 MG/DOSE 2 DOSE(S)/WEEK 2 WEEK(S)/CYCLE
     Route: 065
     Dates: end: 20210607
  4. MELPHALAN [Suspect]
     Active Substance: MELPHALAN
     Indication: Plasma cell myeloma
     Dosage: 200 MILLIGRAM
     Route: 065
     Dates: end: 20210607

REACTIONS (3)
  - Neuropathy peripheral [Unknown]
  - Headache [Unknown]
  - Intentional product use issue [Unknown]

NARRATIVE: CASE EVENT DATE: 20210601
